FAERS Safety Report 5337134-3 (Version None)
Quarter: 2007Q2

REPORT INFORMATION
  Report Type: 
  Country: None (occurrence: None)
  Receive Date: 20070529
  Receipt Date: 20070524
  Transmission Date: 20071010
  Serious: Yes (Hospitalization)
  Sender: FDA-Public Use
  Company Number: US-ASTRAZENECA-2007UW06578

PATIENT
  Age: 58 Year
  Sex: Male

DRUGS (1)
  1. SEROQUEL [Suspect]
     Route: 048

REACTIONS (3)
  - BLOOD POTASSIUM DECREASED [None]
  - ELECTROCARDIOGRAM QT PROLONGED [None]
  - VENTRICULAR TACHYCARDIA [None]
